FAERS Safety Report 16264102 (Version 1)
Quarter: 2019Q2

REPORT INFORMATION
  Report Type: Spontaneous
  Country: US (occurrence: US)
  Receive Date: 20190328
  Receipt Date: 20190328
  Transmission Date: 20190711
  Serious: No
  Sender: FDA-Public Use
  Company Number: None

PATIENT

DRUGS (2)
  1. MELATONIN [Suspect]
     Active Substance: MELATONIN
  2. VISTARIL [Suspect]
     Active Substance: HYDROXYZINE PAMOATE

REACTIONS (1)
  - Duplicate therapy error [None]
